FAERS Safety Report 10178021 (Version 2)
Quarter: 2016Q3

REPORT INFORMATION
  Report Type: Spontaneous
  Country: US (occurrence: US)
  Receive Date: 20140517
  Receipt Date: 20160929
  Transmission Date: 20161108
  Serious: Yes (Death)
  Sender: FDA-Public Use
  Company Number: US-ROCHE-1403215

PATIENT
  Sex: Male
  Weight: 83.08 kg

DRUGS (2)
  1. AVASTIN [Suspect]
     Active Substance: BEVACIZUMAB
     Indication: COLON CANCER
     Route: 042
     Dates: start: 20130409, end: 20130604
  2. CAMPTOSAR [Concomitant]
     Active Substance: IRINOTECAN HYDROCHLORIDE
     Indication: COLON CANCER
     Route: 042
     Dates: start: 20130409, end: 20130604

REACTIONS (1)
  - Colon cancer [Fatal]
